FAERS Safety Report 24242508 (Version 1)
Quarter: 2024Q3

REPORT INFORMATION
  Report Type: Spontaneous
  Country: GB (occurrence: GB)
  Receive Date: 20240823
  Receipt Date: 20240823
  Transmission Date: 20241017
  Serious: Yes (Other)
  Sender: TORRENT
  Company Number: None

PATIENT
  Age: 66 Year
  Sex: Female
  Weight: 60 kg

DRUGS (12)
  1. VENLAFAXINE [Suspect]
     Active Substance: VENLAFAXINE HYDROCHLORIDE
     Indication: Ill-defined disorder
     Route: 048
     Dates: start: 20240730, end: 20240809
  2. DULOXETINE [Suspect]
     Active Substance: DULOXETINE
     Indication: Ill-defined disorder
     Dosage: UNKNOWN
     Route: 048
     Dates: start: 20240809
  3. CLOPIDOGREL [Concomitant]
     Active Substance: CLOPIDOGREL BISULFATE
     Indication: Ill-defined disorder
     Dosage: TAKE ONE ONCE DAILY
     Route: 065
     Dates: start: 20231010
  4. FLUDROCORTISONE [Concomitant]
     Active Substance: FLUDROCORTISONE
     Indication: Ill-defined disorder
     Dosage: ONE TABLET DAILY
     Route: 065
     Dates: start: 20231010
  5. DEXTROSE [Concomitant]
     Active Substance: DEXTROSE\DEXTROSE MONOHYDRATE
     Indication: Ill-defined disorder
     Dosage: AS DIRECTED
     Route: 065
     Dates: start: 20231010
  6. LANSOPRAZOLE [Concomitant]
     Active Substance: LANSOPRAZOLE
     Indication: Ill-defined disorder
     Dosage: TAKE TWO TAB  ONCE DAILY
     Route: 065
     Dates: start: 20231010
  7. MELATONIN [Concomitant]
     Active Substance: MELATONIN
     Indication: Ill-defined disorder
     Dosage: 1 TABLET, 1 TIMES PER DAY
     Route: 065
     Dates: start: 20240813
  8. MIRTAZAPINE [Concomitant]
     Active Substance: MIRTAZAPINE
     Indication: Ill-defined disorder
     Dosage: 1 TABLET, 1 TIMES PER DAY
     Route: 065
     Dates: start: 20231010
  9. NOVORAPID [Concomitant]
     Active Substance: INSULIN ASPART
     Indication: Ill-defined disorder
     Dosage: USE AS DIRECTED
     Route: 065
     Dates: start: 20231010
  10. RISPERIDONE [Concomitant]
     Active Substance: RISPERIDONE
     Indication: Ill-defined disorder
     Dosage: 1MG BD
     Route: 065
     Dates: start: 20231010, end: 20240604
  11. ROSUVASTATIN [Concomitant]
     Active Substance: ROSUVASTATIN\ROSUVASTATIN CALCIUM
     Indication: Ill-defined disorder
     Dosage: TAKE ONE DAILY
     Route: 065
     Dates: start: 20231010
  12. TRESIBA [Concomitant]
     Active Substance: INSULIN DEGLUDEC
     Indication: Ill-defined disorder
     Dosage: USE ONCE DAILY
     Route: 065
     Dates: start: 20231010

REACTIONS (2)
  - Malaise [Unknown]
  - Malaise [Recovered/Resolved]
